FAERS Safety Report 4842981-8 (Version None)
Quarter: 2005Q4

REPORT INFORMATION
  Report Type: 
  Country: None (occurrence: None)
  Receive Date: 20051201
  Receipt Date: 20050701
  Transmission Date: 20060501
  Serious: Yes (Other)
  Sender: FDA-Public Use
  Company Number: US-ROCHE-409852

PATIENT
  Age: 75 Year
  Sex: Female

DRUGS (1)
  1. BONIVA [Suspect]
     Indication: DRUG USE FOR UNKNOWN INDICATION
     Dosage: SECOND DOSAGE TAKEN ON 29 JUNE 2005.
     Route: 048
     Dates: start: 20050529, end: 20050615

REACTIONS (5)
  - ASTHENIA [None]
  - BONE PAIN [None]
  - DIARRHOEA [None]
  - PYREXIA [None]
  - SWELLING [None]
